FAERS Safety Report 21670335 (Version 1)
Quarter: 2022Q4

REPORT INFORMATION
  Report Type: Spontaneous
  Country: JP (occurrence: JP)
  Receive Date: 20221201
  Receipt Date: 20221201
  Transmission Date: 20230113
  Serious: Yes (Other)
  Sender: FDA-Public Use
  Company Number: JP-002147023-NVSJ2022JP101887

PATIENT
  Age: 21 Month
  Sex: Female

DRUGS (2)
  1. AMOXICILLIN [Suspect]
     Active Substance: AMOXICILLIN
     Indication: Upper respiratory tract inflammation
     Dosage: UNK
     Route: 048
  2. CYCLOSPORINE [Concomitant]
     Active Substance: CYCLOSPORINE
     Indication: Pustular psoriasis
     Dosage: UNK
     Route: 048

REACTIONS (2)
  - Pustular psoriasis [Recovering/Resolving]
  - Concomitant disease aggravated [Recovering/Resolving]
